FAERS Safety Report 8849350 (Version 1)
Quarter: 2012Q4

REPORT INFORMATION
  Report Type: Spontaneous
  Country: US (occurrence: None)
  Receive Date: 20121018
  Receipt Date: 20121018
  Transmission Date: 20130627
  Serious: Yes (Death)
  Sender: FDA-Public Use
  Company Number: None

PATIENT
  Age: 62 Year
  Sex: Male
  Weight: 106 kg

DRUGS (3)
  1. CLOPIDOGREL [Suspect]
     Indication: STEMI
     Route: 048
     Dates: start: 20101110
  2. CLOPIDOGREL [Suspect]
     Indication: CORONARY ARTERY DISEASE
     Route: 048
     Dates: start: 20101110
  3. WARFARIN [Suspect]
     Indication: ATRIAL FIBRILLATION
     Route: 048
     Dates: start: 20110518

REACTIONS (5)
  - Subdural haematoma [None]
  - Endotracheal intubation complication [None]
  - Brain midline shift [None]
  - Brain herniation [None]
  - Brain death [None]
